FAERS Safety Report 25612328 (Version 1)
Quarter: 2025Q3

REPORT INFORMATION
  Report Type: Spontaneous
  Country: CH (occurrence: CH)
  Receive Date: 20250728
  Receipt Date: 20250728
  Transmission Date: 20251020
  Serious: Yes (Hospitalization)
  Sender: SANOFI AVENTIS
  Company Number: None

PATIENT
  Age: 87 Year
  Sex: Female
  Weight: 62.2 kg

DRUGS (21)
  1. ENOXAPARIN SODIUM [Suspect]
     Active Substance: ENOXAPARIN SODIUM
     Dosage: 40 MG, QD
     Route: 058
     Dates: start: 20250621, end: 20250630
  2. AMOXICILLIN\CLAVULANATE POTASSIUM [Suspect]
     Active Substance: AMOXICILLIN\CLAVULANATE POTASSIUM
     Dosage: 1.2 G, Q8H
     Route: 042
     Dates: start: 20250621, end: 20250623
  3. AMOXICILLIN\CLAVULANATE POTASSIUM [Suspect]
     Active Substance: AMOXICILLIN\CLAVULANATE POTASSIUM
     Dosage: 1 G, Q8H
     Route: 048
     Dates: start: 20250624, end: 20250628
  4. ATORVASTATIN [Suspect]
     Active Substance: ATORVASTATIN
     Dosage: 40 MG, QD
     Dates: start: 20250624, end: 20250629
  5. IOHEXOL [Suspect]
     Active Substance: IOHEXOL
     Dates: start: 20250621, end: 20250621
  6. IOHEXOL [Suspect]
     Active Substance: IOHEXOL
     Dates: start: 20250624, end: 20250624
  7. VISIPAQUE [Suspect]
     Active Substance: IODIXANOL
     Dates: start: 20250627, end: 20250627
  8. Viferol [Concomitant]
     Dates: start: 20250623, end: 20250623
  9. BISOPROLOL FUMARATE [Concomitant]
     Active Substance: BISOPROLOL FUMARATE
     Dosage: 2.5 MG, QD
  10. DAFALGAN [Concomitant]
     Active Substance: ACETAMINOPHEN
     Dosage: 1 G, Q8H
     Dates: start: 20250623, end: 20250626
  11. DAFALGAN [Concomitant]
     Active Substance: ACETAMINOPHEN
     Dates: start: 20250627
  12. ASPIRIN [Concomitant]
     Active Substance: ASPIRIN
     Dosage: 100 MG, QD
  13. CLOPIDOGREL BISULFATE [Concomitant]
     Active Substance: CLOPIDOGREL BISULFATE
     Dates: start: 20250627, end: 20250627
  14. CLOPIDOGREL BISULFATE [Concomitant]
     Active Substance: CLOPIDOGREL BISULFATE
     Dosage: 75 MG, QD
     Dates: start: 20250628
  15. TOUJEO [Concomitant]
     Active Substance: INSULIN GLARGINE
     Dosage: 1 DF, QD (12-19 UI 1X/J)
     Route: 058
     Dates: start: 20250621
  16. LASIX [Concomitant]
     Active Substance: FUROSEMIDE
     Route: 042
     Dates: start: 20250625, end: 20250625
  17. NOVORAPID [Concomitant]
     Active Substance: INSULIN ASPART
     Route: 058
     Dates: start: 20250621
  18. TORSEMIDE [Concomitant]
     Active Substance: TORSEMIDE
     Dosage: 20 MG, QD
     Dates: start: 20250626, end: 20250630
  19. FIG FRUIT OIL\SORBITOL [Concomitant]
     Active Substance: FIG FRUIT OIL\SORBITOL
     Dosage: 15 ML, QD
     Dates: start: 20250623, end: 20250630
  20. FENTANYL [Concomitant]
     Active Substance: FENTANYL
     Dates: start: 20250627, end: 20250627
  21. CALCIUM\CHOLECALCIFEROL [Concomitant]
     Active Substance: CALCIUM\CHOLECALCIFEROL
     Dosage: 1 DF, QD (500 MG / 800 UI)
     Dates: start: 20250623, end: 20250630

REACTIONS (1)
  - Rash maculo-papular [Recovering/Resolving]

NARRATIVE: CASE EVENT DATE: 20250630
